FAERS Safety Report 8778166 (Version 4)
Quarter: 2013Q2

REPORT INFORMATION
  Report Type: Spontaneous
  Country: DE (occurrence: DE)
  Receive Date: 20120911
  Receipt Date: 20130627
  Transmission Date: 20140414
  Serious: Yes (Hospitalization)
  Sender: FDA-Public Use
  Company Number: DE-RANBAXY-2012US-59974

PATIENT
  Age: 76 Year
  Sex: Male

DRUGS (4)
  1. ZACPAC [Suspect]
     Indication: HELICOBACTER TEST POSITIVE
     Dosage: UNK
     Route: 065
     Dates: start: 20120626
  2. SAXAGLIPTIN OR PLACEBO (SAXAGLIPTIN) [Suspect]
     Indication: TYPE 2 DIABETES MELLITUS
     Dosage: UNK
     Route: 065
     Dates: start: 20101215, end: 20120713
  3. LANTUS [Suspect]
     Indication: TYPE 2 DIABETES MELLITUS
     Dosage: 8 MG
     Route: 065
  4. ASPIRIN [Concomitant]
     Indication: PRODUCT USED FOR UNKNOWN INDICATION
     Dosage: UNK
     Route: 065

REACTIONS (1)
  - Renal failure acute [Recovered/Resolved]
